FAERS Safety Report 5201219-2 (Version None)
Quarter: 2007Q1

REPORT INFORMATION
  Report Type: 
  Country: None (occurrence: None)
  Receive Date: 20070108
  Receipt Date: 20061229
  Transmission Date: 20070707
  Serious: Yes (Hospitalization)
  Sender: FDA-Public Use
  Company Number: DE-BAXTER-2006BH014940

PATIENT
  Age: 48 Year
  Sex: Female

DRUGS (4)
  1. SUPRANE [Suspect]
     Indication: ANAESTHESIA
     Route: 065
     Dates: start: 20061204, end: 20061204
  2. PROPOFOL [Concomitant]
  3. REMIFENTANIL [Concomitant]
  4. MIVACURIUM CHLORIDE [Concomitant]

REACTIONS (5)
  - BRONCHOSPASM [None]
  - CHEST X-RAY ABNORMAL [None]
  - HAEMATOMA [None]
  - HAEMOPTYSIS [None]
  - HAEMORRHAGE [None]
